FAERS Safety Report 5641801-1 (Version None)
Quarter: 2008Q1

REPORT INFORMATION
  Report Type: 
  Country: None (occurrence: None)
  Receive Date: 20080227
  Receipt Date: 20080218
  Transmission Date: 20080703
  Serious: Yes (Other)
  Sender: FDA-Public Use
  Company Number: PHNU2007DE04275

PATIENT
  Sex: Male
  Weight: 90 kg

DRUGS (4)
  1. ZOMETA [Suspect]
     Indication: METASTASES TO BONE
     Dosage: 4 MG, TIW
     Route: 042
     Dates: start: 20050905, end: 20071201
  2. DOCETAXEL [Concomitant]
     Indication: PROSTATE CANCER
     Dosage: 75 MG/M2, UNK
     Route: 065
     Dates: start: 20050401
  3. DEXAMETHASONE TAB [Concomitant]
     Indication: PROSTATE CANCER
     Dosage: 20 MG / CYCLE
     Route: 065
     Dates: start: 20050401
  4. ARANESP [Concomitant]
     Indication: ANAEMIA
     Dosage: 500 UG, TIW
     Route: 065
     Dates: start: 20070401

REACTIONS (10)
  - ANAEMIA [None]
  - BIOPSY SITE UNSPECIFIED ABNORMAL [None]
  - DENTAL TREATMENT [None]
  - IMPAIRED HEALING [None]
  - OSTEONECROSIS [None]
  - PRIMARY SEQUESTRUM [None]
  - SEQUESTRECTOMY [None]
  - TOOTH DISORDER [None]
  - TOOTH EXTRACTION [None]
  - X-RAY ABNORMAL [None]
